FAERS Safety Report 23469345 (Version 2)
Quarter: 2024Q1

REPORT INFORMATION
  Report Type: Spontaneous
  Country: US (occurrence: US)
  Receive Date: 20240202
  Receipt Date: 20240207
  Transmission Date: 20240410
  Serious: Yes (Hospitalization)
  Sender: FDA-Public Use
  Company Number: US-JNJFOC-20240180811

PATIENT
  Age: 54 Year
  Sex: Male

DRUGS (1)
  1. OPSUMIT [Suspect]
     Active Substance: MACITENTAN
     Indication: Product used for unknown indication
     Route: 048

REACTIONS (2)
  - Palpitations [Unknown]
  - Cardioversion [Unknown]

NARRATIVE: CASE EVENT DATE: 20240127
